FAERS Safety Report 20183108 (Version 1)
Quarter: 2021Q4

REPORT INFORMATION
  Report Type: Spontaneous
  Country: US (occurrence: None)
  Receive Date: 20211214
  Receipt Date: 20211214
  Transmission Date: 20220303
  Serious: Yes (Hospitalization)
  Sender: FDA-Public Use
  Company Number: None

PATIENT
  Age: 74 Year
  Sex: Male

DRUGS (19)
  1. JARDIANCE [Suspect]
     Active Substance: EMPAGLIFLOZIN
     Indication: Type 2 diabetes mellitus
     Dosage: FREQUENCY : DAILY;?
     Route: 048
     Dates: start: 20211012, end: 20211202
  2. ALPRAZOLAM [Concomitant]
     Active Substance: ALPRAZOLAM
  3. BUMETANIDE [Concomitant]
     Active Substance: BUMETANIDE
  4. CLONIDINE [Concomitant]
     Active Substance: CLONIDINE
  5. diltiazem er 300mg (ab3) [Concomitant]
  6. DULOXETINE [Concomitant]
     Active Substance: DULOXETINE
  7. FINASTERIDE [Concomitant]
     Active Substance: FINASTERIDE
  8. fluticasone nasal spray 50mcg [Concomitant]
  9. GLIMEPIRIDE [Concomitant]
     Active Substance: GLIMEPIRIDE
  10. JANUVIA [Concomitant]
     Active Substance: SITAGLIPTIN PHOSPHATE
  11. LEVOTHYROXINE SODIUM [Concomitant]
     Active Substance: LEVOTHYROXINE SODIUM
  12. LOSARTAN [Concomitant]
     Active Substance: LOSARTAN
  13. MELOXICAM [Concomitant]
     Active Substance: MELOXICAM
  14. metformin er 500mg (ab1) [Concomitant]
  15. mirtazapam 15mg [Concomitant]
  16. MONTELUKAST [Concomitant]
     Active Substance: MONTELUKAST SODIUM
  17. SIMVASTATIN [Concomitant]
     Active Substance: SIMVASTATIN
  18. TAMSULOSIN [Concomitant]
     Active Substance: TAMSULOSIN
  19. WARFARIN [Concomitant]
     Active Substance: WARFARIN

REACTIONS (3)
  - Urosepsis [None]
  - Urinary tract infection [None]
  - Fungal infection [None]

NARRATIVE: CASE EVENT DATE: 20211202
